FAERS Safety Report 15567475 (Version 2)
Quarter: 2018Q4

REPORT INFORMATION
  Report Type: Spontaneous
  Country: PT (occurrence: PT)
  Receive Date: 20181030
  Receipt Date: 20181105
  Transmission Date: 20190205
  Serious: Yes (Other)
  Sender: FDA-Public Use
  Company Number: PT-PROVELL PHARMACEUTICALS-2058233

PATIENT
  Age: 77 Year
  Sex: Male

DRUGS (6)
  1. EUTHYROX [Suspect]
     Active Substance: LEVOTHYROXINE SODIUM
     Indication: PRODUCT USED FOR UNKNOWN INDICATION
  2. CHLORAMBUCIL [Suspect]
     Active Substance: CHLORAMBUCIL
     Dates: start: 20161206, end: 20170517
  3. VALSARTAN. [Suspect]
     Active Substance: VALSARTAN
  4. GAZYVARO [Suspect]
     Active Substance: OBINUTUZUMAB
     Route: 042
     Dates: start: 20161206, end: 20170517
  5. SOTALOL. [Suspect]
     Active Substance: SOTALOL
  6. PROPAFENONE. [Suspect]
     Active Substance: PROPAFENONE

REACTIONS (5)
  - Thrombocytopenia [Unknown]
  - Infusion related reaction [Recovered/Resolved]
  - Neutropenia [Unknown]
  - Respiratory tract infection [Recovered/Resolved]
  - Anaemia [Unknown]

NARRATIVE: CASE EVENT DATE: 20161206
